FAERS Safety Report 8359295-4 (Version None)
Quarter: 2012Q2

REPORT INFORMATION
  Report Type: 
  Country: None (occurrence: None)
  Receive Date: 20120515
  Receipt Date: 20120507
  Transmission Date: 20120825
  Serious: Yes (Hospitalization)
  Sender: FDA-Public Use
  Company Number: US-BAYER-2011-068186

PATIENT
  Age: 28 Year
  Sex: Female
  Weight: 118.82 kg

DRUGS (7)
  1. SYNTHROID [Concomitant]
     Indication: HYPOTHYROIDISM
     Dosage: UNK
     Route: 048
     Dates: start: 20100706, end: 20101126
  2. TRAMADOL HCL [Concomitant]
     Dosage: 50 MG, UNK
     Route: 048
     Dates: start: 20100312, end: 20101126
  3. ADDERALL 5 [Concomitant]
     Indication: ATTENTION DEFICIT/HYPERACTIVITY DISORDER
     Dosage: UNK
     Dates: start: 20030101
  4. TIZANIDINE [Concomitant]
     Dosage: 4 MG, UNK
     Route: 048
     Dates: start: 20100312, end: 20101126
  5. GLUCOPHAGE [Concomitant]
     Dosage: 500 MG, UNK
     Route: 048
     Dates: start: 20100811, end: 20100913
  6. YASMIN [Suspect]
     Indication: CONTRACEPTION
     Dosage: UNK
     Route: 048
     Dates: start: 20100101, end: 20100925
  7. METFORMIN HCL [Concomitant]
     Indication: DIABETES MELLITUS
     Dosage: 500 MG, UNK
     Route: 048
     Dates: start: 20030101

REACTIONS (3)
  - CHEST PAIN [None]
  - DYSPNOEA [None]
  - PULMONARY EMBOLISM [None]
